FAERS Safety Report 16046951 (Version 2)
Quarter: 2019Q2

REPORT INFORMATION
  Report Type: Spontaneous
  Country: US (occurrence: US)
  Receive Date: 20190307
  Receipt Date: 20190603
  Transmission Date: 20190711
  Serious: No
  Sender: FDA-Public Use
  Company Number: US-PFIZER INC-2019093629

PATIENT
  Age: 75 Year
  Sex: Male

DRUGS (5)
  1. PREDNISONE. [Concomitant]
     Active Substance: PREDNISONE
     Indication: GRANULOMATOSIS WITH POLYANGIITIS
     Dosage: 5 MG, 2X/DAY
     Route: 048
  2. AMLODIPINE [Concomitant]
     Active Substance: AMLODIPINE BESYLATE
     Indication: HYPERTENSION
     Dosage: 5 MG, 1X/DAY
     Route: 048
  3. ELIQUIS [Concomitant]
     Active Substance: APIXABAN
     Indication: ANTICOAGULANT THERAPY
     Dosage: 5 MG, 2X/DAY (EVERY 12 HOURS)
     Dates: start: 2017
  4. INLYTA [Suspect]
     Active Substance: AXITINIB
     Indication: RENAL CANCER STAGE IV
     Dosage: 5 MG, 2X/DAY
     Route: 048
     Dates: start: 20181209
  5. METOPROLOL TARTRATE. [Concomitant]
     Active Substance: METOPROLOL TARTRATE
     Dosage: UNK

REACTIONS (2)
  - Throat irritation [Not Recovered/Not Resolved]
  - Dysphonia [Not Recovered/Not Resolved]
